FAERS Safety Report 9339146 (Version 1)
Quarter: 2013Q2

REPORT INFORMATION
  Report Type: Spontaneous
  Country: US (occurrence: None)
  Receive Date: 20130606
  Receipt Date: 20130606
  Transmission Date: 20140414
  Serious: Yes (Other)
  Sender: FDA-Public Use
  Company Number: None

PATIENT
  Age: 56 Year
  Sex: Female
  Weight: 58.97 kg

DRUGS (2)
  1. DEXTROMETHORPHAN [Suspect]
     Indication: COUGH
     Dosage: EVERY 6-8 HOURS
     Route: 048
     Dates: start: 20130603, end: 20130604
  2. DEXTROMETHORPHAN [Suspect]
     Dosage: EVERY 6 HOURS
     Route: 048
     Dates: start: 20130603, end: 20130603

REACTIONS (5)
  - Fatigue [None]
  - Dizziness [None]
  - Nausea [None]
  - Asthenia [None]
  - Syncope [None]
